FAERS Safety Report 9797559 (Version 1)
Quarter: 2014Q1

REPORT INFORMATION
  Report Type: Spontaneous
  Country: US (occurrence: US)
  Receive Date: 20140106
  Receipt Date: 20140106
  Transmission Date: 20141002
  Serious: Yes (Other)
  Sender: FDA-Public Use
  Company Number: US-ROCHE-1328612

PATIENT
  Sex: Female

DRUGS (2)
  1. VALIUM [Suspect]
     Indication: MULTIPLE SCLEROSIS
     Route: 065
     Dates: start: 20130624
  2. COPAXONE [Suspect]
     Indication: MULTIPLE SCLEROSIS
     Route: 065
     Dates: start: 20130624

REACTIONS (5)
  - Multiple sclerosis [Unknown]
  - Loss of consciousness [Unknown]
  - Skin lesion [Unknown]
  - Fatigue [Unknown]
  - Headache [Unknown]
